FAERS Safety Report 26065887 (Version 1)
Quarter: 2025Q4

REPORT INFORMATION
  Report Type: Spontaneous
  Country: EU (occurrence: EU)
  Receive Date: 20251119
  Receipt Date: 20251119
  Transmission Date: 20260117
  Serious: Yes (Hospitalization, Other)
  Sender: BRISTOL-MYERS SQUIBB COMPANY
  Company Number: None

PATIENT
  Age: 43 Year
  Sex: Male
  Weight: 77 kg

DRUGS (7)
  1. OPDIVO [Suspect]
     Active Substance: NIVOLUMAB
     Indication: Colon cancer
     Dosage: NIVOLUMAB 3MG/KG + IPILIMUMAB 1 MG/KG EVERY 21 DAYS, REACTIONS AFTER 2 CYCLES
     Route: 042
     Dates: start: 20250909, end: 20251007
  2. YERVOY [Suspect]
     Active Substance: IPILIMUMAB
     Indication: Colon cancer
     Dosage: NIVOLUMAB 3MG/KG + IPILIMUMAB 1 MG/KG EVERY 21 DAYS, REACTIONS AFTER 2 CYCLES
     Route: 042
     Dates: start: 20250909, end: 20251007
  3. DIOSMIN\HESPERIDIN [Concomitant]
     Active Substance: DIOSMIN\HESPERIDIN
     Indication: Product used for unknown indication
     Dosage: DOSAGE: 1-1-1 STRENGTH  500MG
  4. DUPHALAC [Concomitant]
     Active Substance: LACTULOSE
     Indication: Product used for unknown indication
     Dosage: DOSAGE: 20-20-0
  5. FEBUXOSTAT [Concomitant]
     Active Substance: FEBUXOSTAT
     Indication: Product used for unknown indication
     Dosage: 1/2-0-0
  6. DIBUCAINE\POLICRESULEN [Concomitant]
     Active Substance: DIBUCAINE\POLICRESULEN
     Indication: Product used for unknown indication
     Dosage: TWICE A DAY IF NECESSARY
  7. METHIMAZOLE [Concomitant]
     Active Substance: METHIMAZOLE
     Indication: Product used for unknown indication
     Dosage: 1-0-1

REACTIONS (4)
  - Pyrexia [Recovered/Resolved]
  - Hepatitis [Recovering/Resolving]
  - Dyspnoea [Recovering/Resolving]
  - Tachycardia [Recovering/Resolving]

NARRATIVE: CASE EVENT DATE: 20251029
